FAERS Safety Report 7698769-6 (Version None)
Quarter: 2011Q3

REPORT INFORMATION
  Report Type: 
  Country: None (occurrence: None)
  Receive Date: 20110819
  Receipt Date: 20110816
  Transmission Date: 20111222
  Serious: Yes (Other)
  Sender: FDA-Public Use
  Company Number: BR-PFIZER INC-2010100792

PATIENT
  Age: 52 Year
  Sex: Female
  Weight: 65 kg

DRUGS (6)
  1. SOY ISOFLAVONES [Concomitant]
     Indication: MENOPAUSE
     Dosage: UNK
     Dates: start: 20100101
  2. FLUOXETINE [Concomitant]
  3. VYTORIN [Concomitant]
     Indication: BLOOD CHOLESTEROL
     Dosage: UNK
     Dates: start: 20100101
  4. VARENICLINE TARTRATE [Suspect]
     Indication: TOBACCO USER
     Dosage: UNK, ONE TABLET TWICE DAILY
     Route: 048
     Dates: start: 20090101, end: 20090101
  5. VARENICLINE TARTRATE [Suspect]
     Dosage: UNK
     Dates: start: 20110806
  6. ALPRAZOLAM [Concomitant]
     Indication: RELAXATION THERAPY
     Dosage: 2 MG AT NIGHT
     Dates: start: 20070101

REACTIONS (4)
  - APATHY [None]
  - INCORRECT DOSE ADMINISTERED [None]
  - WEIGHT INCREASED [None]
  - SELF ESTEEM DECREASED [None]
